FAERS Safety Report 9312277 (Version 1)
Quarter: 2013Q2

REPORT INFORMATION
  Report Type: Spontaneous
  Country: US (occurrence: US)
  Receive Date: 20130528
  Receipt Date: 20130528
  Transmission Date: 20140414
  Serious: Yes (Death, Other)
  Sender: FDA-Public Use
  Company Number: US-JNJFOC-20130510231

PATIENT
  Age: 7 Decade
  Sex: 0

DRUGS (5)
  1. DOXORUBICIN [Suspect]
     Indication: DIFFUSE LARGE B-CELL LYMPHOMA
     Dosage: RD WAS CALCULATED AS: [ACTUAL DOSE (MG)/BSA (M2)]/[PROTOCOL SPECIFIEDDOSE (MG/M2)] X 100.
     Route: 058
  2. RITUXIMAB [Suspect]
     Indication: DIFFUSE LARGE B-CELL LYMPHOMA
     Dosage: RD WAS CALCULATED AS: [ACTUAL DOSE (MG)/BSA (M2)]/[PROTOCOL SPECIFIED??DOSE (MG/M2)] X100.
     Route: 065
  3. CYCLOPHOSPHAMIDE [Suspect]
     Indication: DIFFUSE LARGE B-CELL LYMPHOMA
     Dosage: RD WAS CALCULATED AS: [ACTUAL DOSE (MG)/BSA (M2)]/[PROTOCOL SPECIFIEDDOSE (MG/M2)] X100.
     Route: 065
  4. VINCRISTINE [Suspect]
     Indication: DIFFUSE LARGE B-CELL LYMPHOMA
     Dosage: RD WAS CALCULATED AS: [ACTUAL DOSE (MG)/BSA (M2)]/[PROTOCOL SPECIFIEDDOSE (MG/M2)] X100.
     Route: 065
  5. PREDNISONE [Suspect]
     Indication: DIFFUSE LARGE B-CELL LYMPHOMA
     Dosage: RD WAS CALCULATED AS: [ACTUAL DOSE (MG)/BSA (M2)]/[PROTOCOL SPECIFIEDDOSE (MG/M2)] X100.
     Route: 065

REACTIONS (4)
  - Death [Fatal]
  - Diffuse large B-cell lymphoma [Fatal]
  - Toxicity to various agents [Unknown]
  - Adverse event [Unknown]
